FAERS Safety Report 4900600-6 (Version None)
Quarter: 2006Q1

REPORT INFORMATION
  Report Type: 
  Country: None (occurrence: None)
  Receive Date: 20060131
  Receipt Date: 20060118
  Transmission Date: 20060701
  Serious: Yes (Hospitalization)
  Sender: FDA-Public Use
  Company Number: 2005162184

PATIENT

DRUGS (1)
  1. GLUCOTROL XL [Suspect]
     Dosage: 20 MG (10 MG, 2 IN 1 D)

REACTIONS (1)
  - ADVERSE EVENT [None]
